FAERS Safety Report 4581130-0 (Version None)
Quarter: 2005Q1

REPORT INFORMATION
  Report Type: 
  Country: None (occurrence: None)
  Receive Date: 20050214
  Receipt Date: 20040811
  Transmission Date: 20050727
  Serious: Yes (Other)
  Sender: FDA-Public Use
  Company Number: US-GLAXOSMITHKLINE-A0521832A

PATIENT
  Age: 45 Year
  Sex: Female

DRUGS (4)
  1. LAMICTAL [Suspect]
     Indication: BIPOLAR DISORDER
     Dosage: 50MG TWICE PER DAY
     Route: 048
     Dates: start: 20030715, end: 20030901
  2. PROZAC [Concomitant]
  3. EFFEXOR [Concomitant]
  4. LITHIUM [Concomitant]

REACTIONS (5)
  - MONOPLEGIA [None]
  - NAUSEA [None]
  - RASH [None]
  - STEVENS-JOHNSON SYNDROME [None]
  - VOMITING [None]
